FAERS Safety Report 18807937 (Version 1)
Quarter: 2021Q1

REPORT INFORMATION
  Report Type: Report from Study
  Country: CN (occurrence: CN)
  Receive Date: 20210129
  Receipt Date: 20210129
  Transmission Date: 20210419
  Serious: Yes (Death, Other)
  Sender: FDA-Public Use
  Company Number: CN-GLAXOSMITHKLINE-CN2021APC018634

PATIENT
  Age: 59 Year
  Sex: Female

DRUGS (1)
  1. BELIMUMAB [Suspect]
     Active Substance: BELIMUMAB
     Indication: SYSTEMIC LUPUS ERYTHEMATOSUS
     Dosage: 480 MG

REACTIONS (4)
  - Hepatic cirrhosis [Unknown]
  - Gastrointestinal haemorrhage [Unknown]
  - Cardiopulmonary failure [Fatal]
  - Condition aggravated [Unknown]
